FAERS Safety Report 9949019 (Version 1)
Quarter: 2014Q1

REPORT INFORMATION
  Report Type: Spontaneous
  Country: IT (occurrence: IT)
  Receive Date: 20140304
  Receipt Date: 20140304
  Transmission Date: 20141002
  Serious: Yes (Hospitalization)
  Sender: FDA-Public Use
  Company Number: IT-ROCHE-1356469

PATIENT
  Age: 54 Year
  Sex: Male

DRUGS (1)
  1. AVASTIN [Suspect]
     Indication: ADENOCARCINOMA OF COLON
     Route: 040
     Dates: start: 20110413, end: 20131021

REACTIONS (3)
  - Chest pain [Recovered/Resolved with Sequelae]
  - Hypertension [Recovered/Resolved with Sequelae]
  - Rhabdomyolysis [Recovered/Resolved with Sequelae]
